FAERS Safety Report 8384875-X (Version None)
Quarter: 2012Q2

REPORT INFORMATION
  Report Type: 
  Country: None (occurrence: None)
  Receive Date: 20120524
  Receipt Date: 20120504
  Transmission Date: 20120825
  Serious: Yes (Other)
  Sender: FDA-Public Use
  Company Number: VE-ELI_LILLY_AND_COMPANY-VE201205002082

PATIENT
  Age: 31 Year
  Sex: Female

DRUGS (2)
  1. HUMALOG MIX 75/25 [Suspect]
     Indication: DIABETES MELLITUS
     Dosage: 25 U, EACH MORNING
     Dates: start: 20120313
  2. HUMALOG MIX 75/25 [Suspect]
     Dosage: 15 U, EACH EVENING
     Dates: start: 20120313

REACTIONS (3)
  - JAUNDICE [None]
  - YELLOW SKIN [None]
  - PAIN IN EXTREMITY [None]
